FAERS Safety Report 24110616 (Version 1)
Quarter: 2024Q3

REPORT INFORMATION
  Report Type: Spontaneous
  Country: IT (occurrence: IT)
  Receive Date: 20240718
  Receipt Date: 20240718
  Transmission Date: 20241017
  Serious: Yes (Other)
  Sender: ORGANON
  Company Number: None

PATIENT
  Age: 48 Year
  Sex: Female
  Weight: 65 kg

DRUGS (3)
  1. ZETIA [Suspect]
     Active Substance: EZETIMIBE
     Indication: Dyslipidaemia
     Dosage: 10 MILLIGRAM, QD (1 TABLET IN THE EVENING)
     Route: 048
     Dates: start: 20240523, end: 20240525
  2. ROSUVASTATIN CALCIUM [Suspect]
     Active Substance: ROSUVASTATIN CALCIUM
     Indication: Dyslipidaemia
     Dosage: 10 MILLIGRAM, QD (1 TABLET IN THE EVENING)
     Route: 048
     Dates: start: 20240327, end: 20240505
  3. ALPRAZOLAM [Concomitant]
     Active Substance: ALPRAZOLAM
     Indication: Depression
     Dosage: UNK

REACTIONS (2)
  - Hypertensive crisis [Recovered/Resolved]
  - Malaise [Recovered/Resolved]
